FAERS Safety Report 25380259 (Version 5)
Quarter: 2025Q4

REPORT INFORMATION
  Report Type: Spontaneous
  Country: US (occurrence: US)
  Receive Date: 20250530
  Receipt Date: 20251107
  Transmission Date: 20260118
  Serious: No
  Sender: SANOFI AVENTIS
  Company Number: US-SA-2025SA150419

PATIENT
  Age: 71 Year
  Sex: Female
  Weight: 63.492 kg

DRUGS (2)
  1. DUPIXENT [Suspect]
     Active Substance: DUPILUMAB
     Indication: Dermatitis atopic
     Dosage: 600 MG, 1X
     Route: 058
  2. DUPIXENT [Suspect]
     Active Substance: DUPILUMAB
     Dosage: 300 MG, QOW
     Route: 058

REACTIONS (13)
  - Contusion [Recovering/Resolving]
  - Weight increased [Unknown]
  - Injection site haemorrhage [Recovering/Resolving]
  - Vision blurred [Unknown]
  - Pruritus [Unknown]
  - Therapeutic response shortened [Unknown]
  - Hypersensitivity [Unknown]
  - Injection site pain [Unknown]
  - Injury associated with device [Unknown]
  - Wrong technique in device usage process [Unknown]
  - Accidental exposure to product [Unknown]
  - Exposure via skin contact [Unknown]
  - Expired product administered [Unknown]

NARRATIVE: CASE EVENT DATE: 20250508
